FAERS Safety Report 9241108 (Version 1)
Quarter: 2013Q2

REPORT INFORMATION
  Report Type: Spontaneous
  Country: CH (occurrence: CH)
  Receive Date: 20130419
  Receipt Date: 20130419
  Transmission Date: 20140414
  Serious: Yes (Life-Threatening)
  Sender: FDA-Public Use
  Company Number: CH-009507513-1303CHE007226

PATIENT
  Age: 69 Year
  Sex: Male
  Weight: 58.7 kg

DRUGS (14)
  1. REMERON [Suspect]
     Dosage: 15 MG, QD
     Route: 048
     Dates: start: 20130308, end: 20130313
  2. DIFLUCAN [Interacting]
     Indication: CANDIDA INFECTION
     Dosage: 200 MG, QD
     Route: 042
     Dates: start: 20130215, end: 20130311
  3. LAMOTRIGINE [Concomitant]
     Indication: EPILEPSY
     Dosage: 50 MG, BID
     Route: 048
     Dates: start: 20130109
  4. LONITEN [Concomitant]
     Indication: HYPERTENSION
     Dosage: 5 MG, BID
     Route: 048
     Dates: start: 20130123
  5. LATANOPROST [Concomitant]
     Dosage: UNK, QD
     Dates: start: 20130109
  6. COSOPT [Concomitant]
     Dosage: UNK, BID
     Dates: start: 20130109
  7. PREDNISONE [Concomitant]
     Dosage: UNK, BID
     Dates: start: 20130109
  8. MERONEM [Concomitant]
     Indication: CANDIDA INFECTION
     Dosage: 1000MG, BID
     Route: 042
     Dates: start: 20130114, end: 20130313
  9. FRAGMIN [Concomitant]
     Dosage: 2500 UNIT, QD
     Route: 058
     Dates: start: 20130109, end: 20130326
  10. DUROGESIC [Concomitant]
     Indication: PAIN
     Dosage: 25 MCG/HOUR EVERY 72 HOURS
     Route: 062
  11. MOTILIUM [Concomitant]
     Dosage: 10 MG, TID
     Route: 048
     Dates: start: 20130112, end: 20130326
  12. BELOC-ZOK [Concomitant]
     Indication: HYPERTENSION
     Dosage: 50 MG, BID
     Route: 048
     Dates: start: 20130109
  13. AMLODIPINE [Concomitant]
     Indication: HYPERTENSION
     Dosage: 5 MG, BID
     Route: 048
     Dates: start: 20130109
  14. NEXIUM [Concomitant]
     Dosage: 20 MG, QD
     Route: 048
     Dates: start: 20130109, end: 20130326

REACTIONS (2)
  - Hyperkalaemia [Recovered/Resolved]
  - Drug interaction [Recovered/Resolved]
